FAERS Safety Report 4677716-5 (Version None)
Quarter: 2005Q2

REPORT INFORMATION
  Report Type: 
  Country: None (occurrence: None)
  Receive Date: 20050527
  Receipt Date: 20050513
  Transmission Date: 20051028
  Serious: Yes (Death, Hospitalization)
  Sender: FDA-Public Use
  Company Number: HQWYE553824FEB05

PATIENT
  Age: 63 Year
  Sex: Male

DRUGS (4)
  1. RAPAMUNE [Suspect]
     Indication: PROPHYLAXIS AGAINST TRANSPLANT REJECTION
     Dosage: ORAL
     Route: 048
     Dates: start: 20041211, end: 20041231
  2. CORTICOSTEROID NOS (CORTICOSTEROID NOS,) [Suspect]
     Indication: PROPHYLAXIS AGAINST TRANSPLANT REJECTION
     Dosage: ORAL
     Route: 048
  3. TACROLIMUS (TACROLIMUS,) [Suspect]
     Indication: PROPHYLAXIS AGAINST TRANSPLANT REJECTION
     Dosage: ORAL
     Route: 048
  4. MYCOPHENOLATE MOFETIL (MYCOPHENOLATE MOFETIL) [Concomitant]

REACTIONS (14)
  - ATHEROSCLEROSIS [None]
  - CEREBRAL INFARCTION [None]
  - GENERAL PHYSICAL HEALTH DETERIORATION [None]
  - HEPATIC CIRRHOSIS [None]
  - HEPATIC FAILURE [None]
  - KIDNEY TRANSPLANT REJECTION [None]
  - PERITONITIS BACTERIAL [None]
  - PNEUMONIA ASPERGILLUS [None]
  - PORTAL HYPERTENSION [None]
  - RENAL FAILURE [None]
  - RENAL NECROSIS [None]
  - SPLEEN DISORDER [None]
  - SPLENOMEGALY [None]
  - VARICES OESOPHAGEAL [None]
